FAERS Safety Report 9745662 (Version 2)
Quarter: 2013Q4

REPORT INFORMATION
  Report Type: Spontaneous
  Country: DE (occurrence: DE)
  Receive Date: 20131211
  Receipt Date: 20131211
  Transmission Date: 20140711
  Serious: Yes (Hospitalization)
  Sender: FDA-Public Use
  Company Number: DE-B.I. PHARMACEUTICALS,INC./RIDGEFIELD-2013-BI-32163DE

PATIENT
  Age: 83 Year
  Sex: Female
  Weight: 58 kg

DRUGS (5)
  1. PRADAXA [Suspect]
     Dates: start: 20130424
  2. PRADAXA [Suspect]
     Dosage: 110 MG
     Dates: start: 20130424
  3. BETA BLOCKER [Concomitant]
     Indication: ATRIAL FIBRILLATION
  4. GABAPENTIN 100 [Concomitant]
  5. NASAL OIL [Concomitant]

REACTIONS (9)
  - Blood pressure fluctuation [Unknown]
  - Peripheral coldness [Not Recovered/Not Resolved]
  - Nausea [Not Recovered/Not Resolved]
  - Hyperventilation [Not Recovered/Not Resolved]
  - Herpes zoster [Unknown]
  - Paraesthesia [Unknown]
  - Visual impairment [Unknown]
  - Dry throat [Unknown]
  - Gastrooesophageal reflux disease [Unknown]
